FAERS Safety Report 9325868 (Version 2)
Quarter: 2013Q2

REPORT INFORMATION
  Report Type: Spontaneous
  Country: BR (occurrence: BR)
  Receive Date: 20130604
  Receipt Date: 20130614
  Transmission Date: 20140414
  Serious: No
  Sender: FDA-Public Use
  Company Number: BR-PFIZER INC-2013168024

PATIENT
  Age: 63 Year
  Sex: Male

DRUGS (19)
  1. LYRICA [Suspect]
     Indication: PAIN
     Dosage: 75 MG (1 CAPSULE), AS NEEDED
     Dates: start: 20130530
  2. LYRICA [Suspect]
     Dosage: 2 CAPSULES (UNSPECIFIED STRENGHT AND DOSE) A DAY
  3. AMIODARONE [Concomitant]
     Dosage: 1 TABLET (200 MG), 1X/DAY
     Route: 048
  4. ATENOLOL [Concomitant]
     Dosage: 1 TABLET (25 MG) EVERY 12 HOURS
     Route: 048
  5. ATORVASTATIN [Concomitant]
     Dosage: 1 TABLET (80 MG), AT NIGHT, ONE HOUR AFTER DINNER
     Route: 048
  6. BROMAZEPAM [Concomitant]
     Dosage: 1 TABLET (6 MG), 1X/DAY
     Route: 048
  7. CLOPIDOGREL [Concomitant]
     Dosage: 1 TABLET (75 MG), 1X/DAY
     Route: 048
  8. ENALAPRIL [Concomitant]
     Dosage: HALF TABLET (5 MG), IN THE MORNING
     Route: 048
  9. GLIMEPIRIDE [Concomitant]
     Dosage: 1 TABLET (2 MG), BEFORE BREAKFAST
     Route: 048
  10. MONOCORDIL [Concomitant]
     Dosage: 1 TABLET (20 MG) AT 8 AM AND AT 4 PM
     Route: 048
  11. OLCADIL [Concomitant]
     Dosage: 1 TABLET (1 MG) IN THE MORNING AND 1 TABLET IN THE AFTERNOON
     Route: 048
  12. METFORMIN [Concomitant]
     Dosage: 1 TABLET (850 MG) AFTER BREAKFAST AND AFTER DINNER
     Route: 048
  13. OMEPRAZOLE [Concomitant]
     Dosage: 1 TABLET (20 MG) WHEN FASTING
     Route: 048
  14. SOMALGIN [Concomitant]
     Dosage: 1 TABLET (100 MG), AT LUNCH
     Route: 048
  15. FLUOXETINE [Concomitant]
     Dosage: 2 TABLETS (TOTAL OF 40 MG) IN THE MORNING
     Route: 048
  16. INSULIN NPH [Concomitant]
     Dosage: 40 IU IN THE MORNING AND 20 IU AT NIGHT
     Route: 058
  17. BEWON [Concomitant]
     Dosage: UNK
  18. PROPRANOLOL HYDROCHLORIDE [Concomitant]
     Dosage: UNK
  19. RIVOTRIL SL [Concomitant]
     Indication: ANXIETY
     Dosage: 1 TABLET (5 MG) AS NEEDED
     Route: 060

REACTIONS (2)
  - Pain [Not Recovered/Not Resolved]
  - Hypoaesthesia [Not Recovered/Not Resolved]
